FAERS Safety Report 6822350-1 (Version None)
Quarter: 2010Q3

REPORT INFORMATION
  Report Type: 
  Country: None (occurrence: None)
  Receive Date: 20100708
  Receipt Date: 20100624
  Transmission Date: 20110219
  Serious: Yes (Hospitalization)
  Sender: FDA-Public Use
  Company Number: PHHY2010FI38824

PATIENT
  Sex: Male

DRUGS (7)
  1. LEPONEX [Suspect]
     Indication: SCHIZOPHRENIA
     Dosage: 100 MG, UNK
  2. LEPONEX [Suspect]
     Dosage: 200 MG, UNK
  3. LEPONEX [Suspect]
     Dosage: 200 MG, UNK
  4. LEPONEX [Suspect]
     Dosage: UNK
  5. EMCONCOR [Concomitant]
     Indication: ATRIAL FIBRILLATION
  6. DIGOXIN [Concomitant]
     Indication: ATRIAL FIBRILLATION
  7. WARFARIN SODIUM [Concomitant]
     Indication: ATRIAL FIBRILLATION

REACTIONS (6)
  - ATRIAL FIBRILLATION [None]
  - ELECTROCARDIOGRAM ST SEGMENT DEPRESSION [None]
  - HEART RATE INCREASED [None]
  - HYPERTROPHIC CARDIOMYOPATHY [None]
  - IMPULSE-CONTROL DISORDER [None]
  - PSYCHOSOMATIC DISEASE [None]
